FAERS Safety Report 4496893-2 (Version None)
Quarter: 2004Q3

REPORT INFORMATION
  Report Type: 
  Country: None (occurrence: None)
  Receive Date: 20040928
  Receipt Date: 20040622
  Transmission Date: 20050211
  Serious: No
  Sender: FDA-Public Use
  Company Number: 04P-163-0259730-00

PATIENT
  Age: 55 Year
  Sex: Female

DRUGS (5)
  1. HUMIRA [Suspect]
     Indication: RHEUMATOID ARTHRITIS
     Dosage: 40 MG 1 IN 1 WK SUBCUTANEOUS
     Route: 058
     Dates: start: 20031201
  2. CELECOXIB [Concomitant]
  3. PREDNISONE [Concomitant]
  4. MULTIVITAMIN [Concomitant]
  5. CALCIUM WITH VITAMIN D [Concomitant]

REACTIONS (6)
  - CONDITION AGGRAVATED [None]
  - DRY SKIN [None]
  - HYPOAESTHESIA [None]
  - HYPOTONIA [None]
  - IMPAIRED HEALING [None]
  - PARAESTHESIA [None]
